FAERS Safety Report 8107110-6 (Version None)
Quarter: 2012Q1

REPORT INFORMATION
  Report Type: 
  Country: None (occurrence: None)
  Receive Date: 20120202
  Receipt Date: 20120119
  Transmission Date: 20120608
  Serious: Yes (Other)
  Sender: FDA-Public Use
  Company Number: US-MYLANLABS-2012S1001589

PATIENT
  Age: 7 Month
  Sex: Male

DRUGS (3)
  1. MORPHINE [Suspect]
     Indication: SEDATION
     Route: 065
  2. FENTANYL CITRATE [Suspect]
     Indication: SEDATION
     Route: 065
  3. LORAZEPAM [Suspect]
     Indication: SEDATION
     Route: 065

REACTIONS (1)
  - DELIRIUM [None]
